FAERS Safety Report 4569025-X (Version None)
Quarter: 2005Q1

REPORT INFORMATION
  Report Type: 
  Country: None (occurrence: None)
  Receive Date: 20050203
  Receipt Date: 20050131
  Transmission Date: 20050727
  Serious: Yes (Death, Hospitalization)
  Sender: FDA-Public Use
  Company Number: IT-BRISTOL-MYERS SQUIBB COMPANY-12845814

PATIENT
  Age: 40 Year
  Sex: Male

DRUGS (3)
  1. SUSTIVA [Suspect]
     Indication: HIV INFECTION
     Route: 048
     Dates: start: 20041020, end: 20050107
  2. VIDEX [Suspect]
     Indication: HIV INFECTION
     Route: 048
     Dates: start: 20041020, end: 20050107
  3. EPIVIR [Suspect]
     Indication: HIV INFECTION
     Dates: start: 20041020, end: 20050107

REACTIONS (2)
  - DEATH [None]
  - PULMONARY HYPERTENSION [None]
